APPROVED DRUG PRODUCT: METHADONE HYDROCHLORIDE
Active Ingredient: METHADONE HYDROCHLORIDE
Strength: 10MG
Dosage Form/Route: TABLET;ORAL
Application: A210484 | Product #002 | TE Code: AA
Applicant: ELITE LABORATORIES INC
Approved: Aug 2, 2018 | RLD: No | RS: No | Type: RX